FAERS Safety Report 16246790 (Version 1)
Quarter: 2019Q2

REPORT INFORMATION
  Report Type: Spontaneous
  Country: IT (occurrence: IT)
  Receive Date: 20190427
  Receipt Date: 20190427
  Transmission Date: 20190711
  Serious: Yes (Hospitalization)
  Sender: FDA-Public Use
  Company Number: IT-ACCORD-124109

PATIENT
  Age: 72 Year
  Sex: Male

DRUGS (5)
  1. HUMALOG [Concomitant]
     Active Substance: INSULIN LISPRO
     Dosage: STRENGTH; 100 U / ML, SOLUTION FOR INJECTION IN VIAL
  2. CLOPIDOGREL [Suspect]
     Active Substance: CLOPIDOGREL BISULFATE
     Indication: ANTICOAGULANT THERAPY
     Route: 048
     Dates: start: 20170201, end: 20190221
  3. FERRO-GRAD [Concomitant]
     Active Substance: FERROUS SULFATE
  4. ESAPENT [Concomitant]
  5. TOTALIP [Concomitant]
     Active Substance: ATORVASTATIN

REACTIONS (2)
  - Vomiting [Unknown]
  - Haematemesis [Unknown]

NARRATIVE: CASE EVENT DATE: 20190221
